FAERS Safety Report 17498343 (Version 1)
Quarter: 2020Q1

REPORT INFORMATION
  Report Type: Spontaneous
  Country: US (occurrence: US)
  Receive Date: 20200304
  Receipt Date: 20200304
  Transmission Date: 20200409
  Serious: No
  Sender: FDA-Public Use
  Company Number: US-TARO-2019TAR00407

PATIENT
  Age: 43 Year
  Sex: Female
  Weight: 57.6 kg

DRUGS (6)
  1. NYSTATIN CREAM USP 100,000 UNITS/G [Suspect]
     Active Substance: NYSTATIN
     Dosage: APPLY A SMALL AMOUNT OF THE CREAM 2X/DAY
     Route: 061
     Dates: start: 201905, end: 20190517
  2. JUNEL 1/20 [Concomitant]
     Active Substance: ETHINYL ESTRADIOL\NORETHINDRONE ACETATE
  3. GENTEAL MILD [Concomitant]
     Active Substance: HYPROMELLOSE 2910 (4000 MPA.S)
  4. NYSTATIN CREAM USP 100,000 UNITS/G [Suspect]
     Active Substance: NYSTATIN
     Indication: FUNGAL SKIN INFECTION
     Dosage: APPLY A SMALL AMOUNT OF THE CREAM, 2X/DAY
     Route: 061
     Dates: start: 201903
  5. NYSTATIN CREAM USP 100,000 UNITS/G [Suspect]
     Active Substance: NYSTATIN
     Dosage: APPLY A SMALL AMOUNT OF THE CREAM, 1X/DAY
     Route: 061
     Dates: start: 201903, end: 201904
  6. NYSTATIN CREAM USP 100,000 UNITS/G [Suspect]
     Active Substance: NYSTATIN
     Dosage: APPLY A SMALL AMOUNT OF THE CREAM 2X/DAY
     Route: 061
     Dates: start: 20190528

REACTIONS (6)
  - Skin irritation [Recovering/Resolving]
  - Localised infection [Unknown]
  - Pustule [Unknown]
  - Application site pruritus [Recovered/Resolved]
  - Erythema [Recovered/Resolved]
  - Skin discolouration [Unknown]

NARRATIVE: CASE EVENT DATE: 201905
